FAERS Safety Report 11292316 (Version 1)
Quarter: 2015Q3

REPORT INFORMATION
  Report Type: Spontaneous
  Country: US (occurrence: None)
  Receive Date: 20150721
  Receipt Date: 20150721
  Transmission Date: 20151125
  Serious: Yes (Hospitalization, Other)
  Sender: FDA-Public Use
  Company Number: None

PATIENT
  Age: 59 Year
  Sex: Female

DRUGS (10)
  1. TENOMIN [Concomitant]
  2. CELEXA [Concomitant]
     Active Substance: CITALOPRAM HYDROBROMIDE
  3. DEXILANT [Concomitant]
     Active Substance: DEXLANSOPRAZOLE
  4. TOPAMAX [Suspect]
     Active Substance: TOPIRAMATE
     Indication: MIGRAINE
     Dosage: 2 TIMES A DAY 100MG - PILLS TWICE DAILY BY MOUTH
     Route: 048
     Dates: start: 201208, end: 201401
  5. LEVEMIR [Concomitant]
     Active Substance: INSULIN DETEMIR
  6. VYTORIN [Concomitant]
     Active Substance: EZETIMIBE\SIMVASTATIN
  7. SYNTHROID [Concomitant]
     Active Substance: LEVOTHYROXINE SODIUM
  8. MAG OXIDE [Concomitant]
     Active Substance: MAGNESIUM OXIDE
  9. NOVOLOG INSULIN [Concomitant]
  10. BENICAR [Concomitant]
     Active Substance: OLMESARTAN MEDOXOMIL

REACTIONS (3)
  - Sensory disturbance [None]
  - Major depression [None]
  - Suicide attempt [None]

NARRATIVE: CASE EVENT DATE: 20141119
